FAERS Safety Report 25235584 (Version 1)
Quarter: 2025Q2

REPORT INFORMATION
  Report Type: Spontaneous
  Country: US (occurrence: None)
  Receive Date: 20250424
  Receipt Date: 20250424
  Transmission Date: 20250716
  Serious: Yes (Hospitalization)
  Sender: FDA-CTU
  Company Number: None

PATIENT
  Sex: Female

DRUGS (7)
  1. POMALYST [Suspect]
     Active Substance: POMALIDOMIDE
     Indication: Plasma cell myeloma refractory
     Route: 048
     Dates: start: 20250125
  2. AMIODARONE [Concomitant]
     Active Substance: AMIODARONE
  3. DEXAMETHASONE [Concomitant]
     Active Substance: DEXAMETHASONE
  4. JARDIANCE [Concomitant]
     Active Substance: EMPAGLIFLOZIN
  5. SPIRONOLACTONE [Concomitant]
     Active Substance: SPIRONOLACTONE
  6. XARELTO [Concomitant]
     Active Substance: RIVAROXABAN
  7. ZOLEDRONIC [Concomitant]
     Active Substance: ZOLEDRONIC ACID

REACTIONS (1)
  - Arrhythmia [None]
